FAERS Safety Report 5924837-2 (Version None)
Quarter: 2008Q4

REPORT INFORMATION
  Report Type: 
  Country: None (occurrence: None)
  Receive Date: 20081017
  Receipt Date: 20081017
  Transmission Date: 20090506
  Serious: Yes (Hospitalization)
  Sender: FDA-Public Use
  Company Number: None

PATIENT
  Sex: Female
  Weight: 5.1 kg

DRUGS (3)
  1. CARBOPLATIN [Suspect]
     Dosage: 95 MG
  2. ETOPOSIDE [Suspect]
     Dosage: 60 MG
  3. G-CSF (FILGRASTIM, AMGEN) [Suspect]
     Dosage: 390 MCG

REACTIONS (7)
  - ABDOMINAL COMPARTMENT SYNDROME [None]
  - CARDIAC DISORDER [None]
  - FUNGAL INFECTION [None]
  - HEPATOMEGALY [None]
  - REFUSAL OF TREATMENT BY RELATIVE [None]
  - RENAL FAILURE [None]
  - RESPIRATORY FAILURE [None]
